FAERS Safety Report 5837632-X (Version None)
Quarter: 2008Q3

REPORT INFORMATION
  Report Type: 
  Country: None (occurrence: None)
  Receive Date: 20080807
  Receipt Date: 20080729
  Transmission Date: 20090109
  Serious: Yes (Life-Threatening)
  Sender: FDA-Public Use
  Company Number: JP-AMGEN-US298914

PATIENT
  Sex: Female
  Weight: 49 kg

DRUGS (7)
  1. ENBREL [Suspect]
     Indication: RHEUMATOID ARTHRITIS
     Route: 058
     Dates: start: 20080205, end: 20080225
  2. SELBEX [Concomitant]
     Route: 048
  3. PARIET [Concomitant]
     Route: 048
  4. PAXIL [Concomitant]
     Route: 048
  5. RISEDRONATE SODIUM [Concomitant]
     Route: 048
  6. PREDONINE [Concomitant]
     Indication: RHEUMATOID ARTHRITIS
     Route: 048
  7. ALFAROL [Concomitant]
     Route: 048

REACTIONS (2)
  - HISTIOCYTOSIS HAEMATOPHAGIC [None]
  - MEASLES [None]
